FAERS Safety Report 4711047-X (Version None)
Quarter: 2005Q3

REPORT INFORMATION
  Report Type: 
  Country: None (occurrence: None)
  Receive Date: 20050708
  Receipt Date: 20050628
  Transmission Date: 20060218
  Serious: Yes (Other)
  Sender: FDA-Public Use
  Company Number: 2005094199

PATIENT
  Sex: Male

DRUGS (1)
  1. ATORVASTATIN CALCIUM [Suspect]
     Indication: HYPERCHOLESTEROLAEMIA
     Dosage: 40 MG
     Dates: start: 20000101, end: 20050618

REACTIONS (5)
  - ANGIONEUROTIC OEDEMA [None]
  - CHOLANGITIS [None]
  - CHOLECYSTITIS [None]
  - HEPATITIS [None]
  - PYREXIA [None]
